FAERS Safety Report 22111911 (Version 1)
Quarter: 2023Q1

REPORT INFORMATION
  Report Type: Spontaneous
  Country: US (occurrence: US)
  Receive Date: 20230318
  Receipt Date: 20230318
  Transmission Date: 20230418
  Serious: Yes (Hospitalization)
  Sender: FDA-Public Use
  Company Number: US-TEVA-2023-US-2867018

PATIENT
  Age: 44 Year
  Sex: Female
  Weight: 70.31 kg

DRUGS (4)
  1. AJOVY [Suspect]
     Active Substance: FREMANEZUMAB-VFRM
     Indication: Migraine
     Dosage: 225/1.5 MG/ML , MONTHLY
     Route: 065
     Dates: start: 20221114, end: 2023
  2. AJOVY [Suspect]
     Active Substance: FREMANEZUMAB-VFRM
  3. HYDROXYCHLOROQUINE [Concomitant]
     Active Substance: HYDROXYCHLOROQUINE
     Indication: Product used for unknown indication
  4. Tirosant [Concomitant]
     Indication: Product used for unknown indication

REACTIONS (12)
  - Intracranial aneurysm [Unknown]
  - Blood pressure increased [Recovered/Resolved]
  - Dyspnoea [Recovered/Resolved]
  - Alopecia [Not Recovered/Not Resolved]
  - Constipation [Not Recovered/Not Resolved]
  - Feeling abnormal [Unknown]
  - Weight increased [Unknown]
  - Menstrual disorder [Unknown]
  - Hormone level abnormal [Unknown]
  - Thyroid disorder [Unknown]
  - Palpitations [Recovered/Resolved]
  - Hypersensitivity [Recovered/Resolved]

NARRATIVE: CASE EVENT DATE: 20221101
